FAERS Safety Report 10314946 (Version 1)
Quarter: 2014Q3

REPORT INFORMATION
  Report Type: Spontaneous
  Country: JP (occurrence: JP)
  Receive Date: 20140718
  Receipt Date: 20140718
  Transmission Date: 20150326
  Serious: Yes (Other)
  Sender: FDA-Public Use
  Company Number: JP-ASTRAZENECA-2014SE52279

PATIENT
  Age: 40 Year
  Sex: Male

DRUGS (1)
  1. MEROPEN [Suspect]
     Active Substance: MEROPENEM
     Route: 041
     Dates: start: 201112, end: 201112

REACTIONS (1)
  - Interstitial lung disease [Unknown]
